FAERS Safety Report 20803618 (Version 1)
Quarter: 2022Q2

REPORT INFORMATION
  Report Type: Spontaneous
  Country: DK (occurrence: DK)
  Receive Date: 20220509
  Receipt Date: 20220509
  Transmission Date: 20220721
  Serious: Yes (Death, Hospitalization, Other)
  Sender: FDA-Public Use
  Company Number: DK-PFM-2022-03161

PATIENT
  Age: 39 Year
  Sex: Female

DRUGS (9)
  1. VINORELBINE [Suspect]
     Active Substance: VINORELBINE TARTRATE
     Indication: Non-small cell lung cancer
     Dosage: UNK, THIRD-LINE
     Route: 065
  2. CARBOPLATIN [Suspect]
     Active Substance: CARBOPLATIN
     Indication: Non-small cell lung cancer
     Dosage: UNK, THIRD-LINE
     Route: 065
  3. CISPLATIN [Suspect]
     Active Substance: CISPLATIN
     Indication: Product used for unknown indication
     Dosage: UNK
     Route: 065
  4. SULFAMETHOXAZOLE AND TRIMETHOPRIM [Concomitant]
     Active Substance: SULFAMETHOXAZOLE\TRIMETHOPRIM
     Indication: Product used for unknown indication
     Dosage: UNK, TID, 1200/240 MG T.I.D.
     Route: 065
  5. MEROPENEM [Concomitant]
     Active Substance: MEROPENEM
     Indication: Product used for unknown indication
     Dosage: 6 GRAM, QD (2 G, TID (3/DAY))
     Route: 042
  6. PREDNISOLONE [Concomitant]
     Active Substance: PREDNISOLONE
     Indication: Product used for unknown indication
     Dosage: 25 MILLIGRAM, QD, 25 MG, DAILY (0.36 MG/KG).
     Route: 065
  7. AMOXICILLIN\CLAVULANIC ACID [Concomitant]
     Active Substance: AMOXICILLIN\CLAVULANIC ACID
     Indication: Product used for unknown indication
     Dosage: UNK, TID, 500 MG/125 MG T.I.D.
     Route: 065
  8. MOXIFLOXACIN [Concomitant]
     Active Substance: MOXIFLOXACIN
     Indication: Product used for unknown indication
     Dosage: 400 MG, QD (1/DAY)
     Route: 065
  9. AMPICILLIN [Concomitant]
     Active Substance: AMPICILLIN
     Indication: Product used for unknown indication
     Dosage: 2 GRAM, Q4H, 2 G, Q4H
     Route: 065

REACTIONS (10)
  - Non-small cell lung cancer [Fatal]
  - Depressed level of consciousness [Unknown]
  - Facial paralysis [Unknown]
  - Inflammation [Unknown]
  - Brain abscess [Unknown]
  - Sepsis [Unknown]
  - Pyrexia [Recovered/Resolved]
  - Malaise [Unknown]
  - Headache [Recovered/Resolved]
  - Anaemia [Unknown]
